FAERS Safety Report 5502561-8 (Version None)
Quarter: 2007Q4

REPORT INFORMATION
  Report Type: 
  Country: None (occurrence: None)
  Receive Date: 20071031
  Receipt Date: 20071026
  Transmission Date: 20080405
  Serious: Yes (Other)
  Sender: FDA-Public Use
  Company Number: PHNU2007DE03189

PATIENT
  Age: 67 Year
  Sex: Female

DRUGS (10)
  1. FEMARA [Suspect]
     Indication: BREAST CANCER
     Route: 048
     Dates: start: 20070301
  2. STENOCRAT [Concomitant]
     Route: 065
  3. ZINC [Concomitant]
     Route: 065
  4. SELENIUM [Concomitant]
     Route: 065
  5. MAGNESIUM SULFATE [Concomitant]
     Route: 065
  6. ASCORBIC ACID [Concomitant]
     Route: 065
  7. ANTIBIOTICS [Concomitant]
     Route: 065
  8. NEXIUM [Concomitant]
     Route: 065
  9. ULCOGANT [Concomitant]
     Route: 065
  10. ATACAND [Concomitant]

REACTIONS (2)
  - ALOPECIA [None]
  - BENIGN BREAST NEOPLASM [None]
